FAERS Safety Report 7656279-6 (Version None)
Quarter: 2011Q3

REPORT INFORMATION
  Report Type: 
  Country: None (occurrence: None)
  Receive Date: 20110804
  Receipt Date: 20110727
  Transmission Date: 20111222
  Serious: Yes (Other)
  Sender: FDA-Public Use
  Company Number: SI-MILLENNIUM PHARMACEUTICALS, INC.-2011-03313

PATIENT

DRUGS (8)
  1. VELCADE [Suspect]
     Indication: MULTIPLE MYELOMA
     Dosage: 2.0 MG, UNK
     Route: 042
     Dates: start: 20110627
  2. TULIP                              /00435301/ [Concomitant]
  3. ATORVASTATIN [Concomitant]
  4. CALCIUM CARBONATE [Concomitant]
  5. DEXAMETHASONE [Concomitant]
     Dosage: 20 MG, UNK
     Route: 042
  6. B COMPLEX                          /00212701/ [Concomitant]
  7. PERINDOPRIL [Concomitant]
  8. AVODART [Concomitant]

REACTIONS (2)
  - ERYTHEMA [None]
  - SKIN WARM [None]
